FAERS Safety Report 25172354 (Version 1)
Quarter: 2025Q2

REPORT INFORMATION
  Report Type: Spontaneous
  Country: US (occurrence: None)
  Receive Date: 20250407
  Receipt Date: 20250407
  Transmission Date: 20250716
  Serious: Yes (unspecified)
  Sender: FDA-CTU
  Company Number: None

PATIENT
  Age: 19 Year
  Sex: Female
  Weight: 60.75 kg

DRUGS (3)
  1. CLEAR PROOF ACNE SYSTEM [Suspect]
     Active Substance: BENZOYL PEROXIDE\SALICYLIC ACID
     Indication: Acne
     Dosage: TWICE A DAY TRANSDERMAL?
     Route: 062
     Dates: start: 20250402, end: 20250405
  2. AVEENO [Concomitant]
     Active Substance: DIMETHICONE\HOMOSALATE\OCTINOXATE\OCTISALATE\TITANIUM DIOXIDE
  3. ALOE VERA LEAF [Concomitant]
     Active Substance: ALOE VERA LEAF

REACTIONS (4)
  - Skin burning sensation [None]
  - Eye inflammation [None]
  - Inflammation [None]
  - Skin irritation [None]

NARRATIVE: CASE EVENT DATE: 20250405
